FAERS Safety Report 24001149 (Version 3)
Quarter: 2025Q3

REPORT INFORMATION
  Report Type: Spontaneous
  Country: JP (occurrence: JP)
  Receive Date: 20240621
  Receipt Date: 20250803
  Transmission Date: 20251020
  Serious: Yes (Hospitalization, Other)
  Sender: ALEXION PHARMACEUTICALS
  Company Number: 2024A138975

PATIENT
  Age: 8 Decade
  Sex: Male

DRUGS (8)
  1. ANDEXXA [Suspect]
     Active Substance: ANDEXANET ALFA
     Indication: Traumatic subarachnoid haemorrhage
  2. APIXABAN [Concomitant]
     Active Substance: APIXABAN
  3. APIXABAN [Concomitant]
     Active Substance: APIXABAN
  4. FAMOTIDINE [Concomitant]
     Active Substance: FAMOTIDINE
  5. NIFEDIPINE [Concomitant]
     Active Substance: NIFEDIPINE
  6. TELMISARTAN [Concomitant]
     Active Substance: TELMISARTAN
  7. CARVEDILOL [Concomitant]
     Active Substance: CARVEDILOL
  8. BEPRIDIL HYDROCHLORIDE [Concomitant]
     Active Substance: BEPRIDIL HYDROCHLORIDE

REACTIONS (4)
  - Blood pressure decreased [Recovered/Resolved with Sequelae]
  - Intra-abdominal haemorrhage [Recovered/Resolved with Sequelae]
  - Mesenteritis [Recovered/Resolved with Sequelae]
  - Intestinal ischaemia [Recovered/Resolved with Sequelae]
